FAERS Safety Report 4784337-2 (Version None)
Quarter: 2005Q3

REPORT INFORMATION
  Report Type: 
  Country: None (occurrence: None)
  Receive Date: 20050929
  Receipt Date: 20050929
  Transmission Date: 20060218
  Serious: No
  Sender: FDA-Public Use
  Company Number: None

PATIENT
  Age: 82 Year
  Sex: Male
  Weight: 77.1 kg

DRUGS (13)
  1. WARFARIN SODIUM [Suspect]
     Indication: ATRIAL FIBRILLATION
     Dosage: VARIOUS, VARIOUS, ORAL
     Route: 048
  2. LISINOPRIL [Concomitant]
  3. SIMVASTATIN [Concomitant]
  4. SYNTHROID [Concomitant]
  5. METOPROLOL TARTRATE [Concomitant]
  6. FENTANYL [Concomitant]
  7. HYDROCODONE 5/ACETAMINOPHEN [Concomitant]
  8. OMEPRAZOLE [Concomitant]
  9. VENLAFAXINE HCL [Concomitant]
  10. BUSPIRONE HCL [Concomitant]
  11. FUROSEMIDE [Concomitant]
  12. PENTOXIFYLLINE [Concomitant]
  13. MECLIZINE HCL [Concomitant]

REACTIONS (1)
  - INTERNATIONAL NORMALISED RATIO INCREASED [None]
